FAERS Safety Report 19406528 (Version 6)
Quarter: 2022Q1

REPORT INFORMATION
  Report Type: Report from Study
  Country: US (occurrence: US)
  Receive Date: 20210611
  Receipt Date: 20220217
  Transmission Date: 20220424
  Serious: Yes (Hospitalization)
  Sender: FDA-Public Use
  Company Number: US-JCAR017-FOL-001-1051001-20210604-0002SG

PATIENT
  Age: 71 Year
  Sex: Male
  Weight: 77 kg

DRUGS (22)
  1. LISOCABTAGENE MARALEUCEL [Suspect]
     Active Substance: LISOCABTAGENE MARALEUCEL
     Indication: Marginal zone lymphoma
     Dosage: 100 X 10^6 CAR+ T CELLS X ONCE
     Route: 042
     Dates: start: 20210524, end: 20210524
  2. CYCLOPHOSPHAMIDE [Suspect]
     Active Substance: CYCLOPHOSPHAMIDE
     Indication: Marginal zone lymphoma
     Dosage: 580 MG X 1 X 1 DAYS
     Route: 042
     Dates: start: 20210519, end: 20210519
  3. CYCLOPHOSPHAMIDE [Suspect]
     Active Substance: CYCLOPHOSPHAMIDE
     Dosage: 580 MG X 1 X 1 DAYS
     Route: 042
     Dates: start: 20210520, end: 20210520
  4. CYCLOPHOSPHAMIDE [Suspect]
     Active Substance: CYCLOPHOSPHAMIDE
     Dosage: 580 MG X 1 X 1 DAYS
     Route: 042
     Dates: start: 20210521, end: 20210521
  5. FLUDARABINE [Suspect]
     Active Substance: FLUDARABINE PHOSPHATE
     Indication: Marginal zone lymphoma
     Dosage: 47 MG X 1 X 1 DAYS
     Route: 042
     Dates: start: 20210519, end: 20210519
  6. FLUDARABINE [Suspect]
     Active Substance: FLUDARABINE PHOSPHATE
     Dosage: 47 MG X 1 X 1 DAYS
     Route: 042
     Dates: start: 20210520, end: 20210520
  7. FLUDARABINE [Suspect]
     Active Substance: FLUDARABINE PHOSPHATE
     Dosage: 47 MG X 1 X 1 DAYS
     Route: 042
     Dates: start: 20210521, end: 20210521
  8. CALCIUM [Concomitant]
     Active Substance: CALCIUM
     Indication: Osteoporosis
     Dosage: 600 MG X 1 X 1 DAYS
     Route: 048
     Dates: start: 202101
  9. FAMOTIDINE [Concomitant]
     Active Substance: FAMOTIDINE
     Indication: Gastrooesophageal reflux disease
     Dosage: 20 MG X 1 X 1 DAYS
     Route: 048
     Dates: start: 201701
  10. SENNA LAXATIVE [Concomitant]
     Active Substance: SENNOSIDES
     Indication: Constipation
     Dosage: 1 TABLET X PRN
     Route: 048
  11. VITAMIN C [Concomitant]
     Active Substance: ASCORBIC ACID
     Indication: Routine health maintenance
     Dosage: 1000 MG
     Route: 048
     Dates: start: 2000
  12. VITAMIN D3 [Concomitant]
     Active Substance: CHOLECALCIFEROL
     Indication: Osteoporosis
     Dosage: 400 IU X 1 X 1 DAYS
     Route: 048
     Dates: start: 201901
  13. ACYCLOVIR [Concomitant]
     Active Substance: ACYCLOVIR
     Indication: Prophylaxis
     Dosage: 400 MG X 3 X 1 DAYS
     Route: 048
     Dates: start: 20210519
  14. ALLOPURINOL [Concomitant]
     Active Substance: ALLOPURINOL
     Indication: Prophylaxis
     Dosage: 300 MG X 1 X 1 DAYS
     Route: 048
     Dates: start: 20210519, end: 20210607
  15. BACTRIM [Concomitant]
     Active Substance: SULFAMETHOXAZOLE\TRIMETHOPRIM
     Indication: Prophylaxis
     Dosage: 1 TABLET X 3 X 1 WEEKS
     Route: 048
     Dates: start: 20210526, end: 20210601
  16. FLUCONAZOLE [Concomitant]
     Active Substance: FLUCONAZOLE
     Indication: Prophylaxis
     Dosage: 400 MG X 1 X 1 DAYS
     Route: 048
     Dates: start: 20210522
  17. KEPPRA [Concomitant]
     Active Substance: LEVETIRACETAM
     Indication: Prophylaxis
     Dosage: 750 MG X 2 X 1 DAYS
     Route: 048
     Dates: start: 20210524, end: 20210616
  18. MAGNESIUM OXIDE [Concomitant]
     Active Substance: MAGNESIUM OXIDE
     Indication: Constipation
     Dosage: 400 MG X 1 X 1 DAYS
     Route: 048
     Dates: start: 20210401
  19. MOXIFLOXACIN [Concomitant]
     Active Substance: MOXIFLOXACIN
     Indication: Prophylaxis
     Dosage: 400 MG X 1 X 1 DAYS
     Route: 048
     Dates: start: 20210522, end: 20210530
  20. ONDANSETRON [Concomitant]
     Active Substance: ONDANSETRON
     Indication: Chemotherapy side effect prophylaxis
     Dosage: 16 MG X PRN
     Route: 050
     Dates: start: 20210519, end: 20210608
  21. SODIUM CHLORIDE [Concomitant]
     Active Substance: SODIUM CHLORIDE
     Indication: Fluid replacement
     Dosage: 1000 ML X ONCE
     Route: 042
     Dates: start: 20210530, end: 20210530
  22. SODIUM CHLORIDE [Concomitant]
     Active Substance: SODIUM CHLORIDE
     Dosage: 1000 ML X ONCE
     Route: 042
     Dates: start: 20210531, end: 20210531

REACTIONS (1)
  - Neurotoxicity [Recovered/Resolved]

NARRATIVE: CASE EVENT DATE: 20210603
